FAERS Safety Report 8092090-2 (Version None)
Quarter: 2012Q1

REPORT INFORMATION
  Report Type: 
  Country: None (occurrence: None)
  Receive Date: 20120129
  Receipt Date: 20111108
  Transmission Date: 20120608
  Serious: No
  Sender: FDA-Public Use
  Company Number: US-ABBOTT-11P-163-0873096-00

PATIENT
  Age: 35 Year
  Sex: Male

DRUGS (12)
  1. MULTI-VITAMIN [Concomitant]
     Indication: PRODUCT USED FOR UNKNOWN INDICATION
  2. ATIVAN [Concomitant]
     Indication: ANXIETY
  3. HUMIRA [Suspect]
     Indication: CROHN'S DISEASE
     Dates: start: 20110930
  4. IMURAN [Concomitant]
     Indication: PRODUCT USED FOR UNKNOWN INDICATION
  5. NEXIUM [Concomitant]
     Indication: DYSPEPSIA
  6. STOOL SOFTENER [Concomitant]
     Indication: PRODUCT USED FOR UNKNOWN INDICATION
  7. CIPROFLOXACIN [Concomitant]
     Indication: PRODUCT USED FOR UNKNOWN INDICATION
  8. PREDNISONE TAB [Concomitant]
     Indication: PRODUCT USED FOR UNKNOWN INDICATION
  9. FLAGYL [Concomitant]
     Indication: PRODUCT USED FOR UNKNOWN INDICATION
  10. OXYCODONE HCL [Concomitant]
     Indication: PRODUCT USED FOR UNKNOWN INDICATION
     Dosage: AS NEEDED
  11. DICYCLOMINE [Concomitant]
     Indication: MUSCLE SPASMS
     Dosage: 10MG OR 40MG DAILY
  12. ONDANSETRON [Concomitant]
     Indication: NAUSEA

REACTIONS (5)
  - HEART RATE DECREASED [None]
  - BLOOD PRESSURE DECREASED [None]
  - DIZZINESS [None]
  - SWELLING FACE [None]
  - LOSS OF CONSCIOUSNESS [None]
